FAERS Safety Report 13054976 (Version 1)
Quarter: 2016Q4

REPORT INFORMATION
  Report Type: Spontaneous
  Country: FR (occurrence: FR)
  Receive Date: 20161222
  Receipt Date: 20161222
  Transmission Date: 20170207
  Serious: Yes (Hospitalization)
  Sender: FDA-Public Use
  Company Number: FR-BION-005819

PATIENT
  Age: 58 Year
  Sex: Male

DRUGS (6)
  1. BENFLUOREX/BENFLUOREX HYDROCHLORIDE [Concomitant]
  2. TRIHEXYPHENIDYL [Concomitant]
     Active Substance: TRIHEXYPHENIDYL
     Indication: EXTRAPYRAMIDAL DISORDER
  3. AMISULPRIDE [Concomitant]
     Active Substance: AMISULPRIDE
  4. LIOTHYRONINE [Concomitant]
     Active Substance: LIOTHYRONINE
  5. CIPROFIBRATE [Concomitant]
     Active Substance: CIPROFIBRATE
  6. VALPROIC ACID UNKNOWN PRODUCT [Suspect]
     Active Substance: VALPROIC ACID
     Indication: BIPOLAR I DISORDER

REACTIONS (3)
  - Cognitive disorder [Recovered/Resolved]
  - Parkinsonism [Recovered/Resolved]
  - Hyperammonaemia [Recovered/Resolved]
